FAERS Safety Report 8216507-5 (Version None)
Quarter: 2012Q1

REPORT INFORMATION
  Report Type: 
  Country: None (occurrence: None)
  Receive Date: 20120314
  Receipt Date: 20120302
  Transmission Date: 20120608
  Serious: Yes (Other)
  Sender: FDA-Public Use
  Company Number: 2012P1009217

PATIENT
  Age: 88 Year
  Sex: Female

DRUGS (3)
  1. PEPCID [Suspect]
     Dosage: 40 MG; QD; PO
     Route: 048
     Dates: start: 20120229, end: 20120229
  2. LASIX [Concomitant]
  3. DIGOXIN [Concomitant]

REACTIONS (2)
  - SLOW RESPONSE TO STIMULI [None]
  - PCO2 INCREASED [None]
